FAERS Safety Report 7608558-6 (Version None)
Quarter: 2011Q3

REPORT INFORMATION
  Report Type: 
  Country: None (occurrence: None)
  Receive Date: 20110714
  Receipt Date: 20110705
  Transmission Date: 20111222
  Serious: Yes (Hospitalization)
  Sender: FDA-Public Use
  Company Number: PHHY2011US60762

PATIENT
  Age: 54 Year
  Sex: Male

DRUGS (10)
  1. SODIUM CHLORIDE [Concomitant]
     Dosage: 2 L
  2. RED BLOOD CELLS, CONCENTRATED [Concomitant]
  3. FOLIC ACID [Concomitant]
     Route: 042
  4. CIPROFLOXACIN [Concomitant]
  5. OCTREOTIDE ACETATE [Suspect]
     Indication: OESOPHAGEAL VARICES HAEMORRHAGE
     Dosage: 50 UG
     Route: 042
  6. PANTOPRAZOLE [Concomitant]
     Dosage: 80 MG
     Route: 040
  7. PROTON PUMP INHIBITORS [Concomitant]
  8. THIAMINE [Concomitant]
  9. OCTREOTIDE ACETATE [Suspect]
     Dosage: 50 UG/HR, UNK
  10. ANTIBIOTICS [Concomitant]

REACTIONS (1)
  - THROMBOCYTOPENIA [None]
